FAERS Safety Report 8614082-4 (Version None)
Quarter: 2012Q3

REPORT INFORMATION
  Report Type: 
  Country: None (occurrence: None)
  Receive Date: 20120823
  Receipt Date: 20120820
  Transmission Date: 20120928
  Serious: Yes (Other)
  Sender: FDA-Public Use
  Company Number: US-TEVA-354800USA

PATIENT
  Sex: Female

DRUGS (9)
  1. LYRICA [Concomitant]
     Indication: PAIN
     Dosage: BID - TID
     Route: 048
  2. COLACE [Concomitant]
     Indication: CONSTIPATION
     Dosage: PRN
     Route: 048
  3. CITRUCEL [Concomitant]
     Indication: CONSTIPATION
     Dosage: PRN
     Route: 048
  4. GLYCOLAX [Concomitant]
     Indication: CONSTIPATION
     Dosage: PRN
     Route: 048
  5. ZOCOR [Concomitant]
     Indication: HYPERCHOLESTEROLAEMIA
     Dosage: 20 MILLIGRAM DAILY;
     Route: 048
  6. PROZAC [Concomitant]
     Indication: DEPRESSION
     Dosage: 20 MILLIGRAM DAILY;
     Route: 048
  7. OXYTRIOL PATCH [Concomitant]
     Indication: URINARY INCONTINENCE
     Route: 061
  8. VICODIN [Concomitant]
     Indication: PAIN
     Dosage: PRN
     Route: 048
  9. COPAXONE [Suspect]
     Indication: MULTIPLE SCLEROSIS
     Dosage: 20 MILLIGRAM DAILY;
     Route: 058
     Dates: start: 20050311, end: 20120701

REACTIONS (1)
  - LEUKAEMIA [None]
